FAERS Safety Report 7067525-4 (Version None)
Quarter: 2010Q4

REPORT INFORMATION
  Report Type: 
  Country: None (occurrence: None)
  Receive Date: 20101028
  Receipt Date: 20091124
  Transmission Date: 20110411
  Serious: No
  Sender: FDA-Public Use
  Company Number: US-PFIZER INC-2009293644

PATIENT
  Sex: Male

DRUGS (12)
  1. LOMOTIL [Suspect]
     Indication: DIARRHOEA
     Dosage: UNK
     Route: 048
     Dates: start: 20090127
  2. CEPHALEXIN [Concomitant]
     Dosage: UNK
     Route: 048
  3. ASPIRIN [Concomitant]
     Dosage: UNK
     Route: 048
  4. CHOLESTYRAMINE RESIN [Concomitant]
  5. PRILOSEC [Concomitant]
     Route: 048
  6. IMODIUM A-D [Concomitant]
     Dosage: UNK
     Route: 048
  7. FLUOCINONIDE [Concomitant]
     Dosage: UNK
  8. ADVIL [Concomitant]
     Dosage: UNK
     Route: 048
  9. ALLOPURINOL [Concomitant]
     Dosage: UNK
     Route: 048
     Dates: start: 20030110
  10. SYNTHROID [Concomitant]
     Dosage: UNK
     Route: 048
     Dates: start: 20031001
  11. FLOMOXEF SODIUM [Concomitant]
     Dosage: UNK
     Route: 048
     Dates: start: 20040816
  12. GLEEVEC [Concomitant]
     Dosage: 400 MG, 1X/DAY
     Route: 048
     Dates: start: 20091117

REACTIONS (2)
  - ABDOMINAL DISTENSION [None]
  - FLATULENCE [None]
